FAERS Safety Report 6386355-X (Version None)
Quarter: 2009Q3

REPORT INFORMATION
  Report Type: 
  Country: None (occurrence: None)
  Receive Date: 20090930
  Receipt Date: 20090930
  Transmission Date: 20100115
  Serious: No
  Sender: FDA-Public Use
  Company Number: None

PATIENT
  Age: 66 Year
  Sex: Female
  Weight: 77.1115 kg

DRUGS (2)
  1. KETOROLAC TROMETHAMINE [Suspect]
     Indication: SWELLING
     Dosage: ONE EVERY 6 HOURS IV DRIP; ONE EVERY 6 HOURS PO
     Route: 041
     Dates: start: 20090915, end: 20090916
  2. KETOROLAC TROMETHAMINE [Suspect]
     Indication: SWELLING
     Dosage: ONE EVERY 6 HOURS IV DRIP; ONE EVERY 6 HOURS PO
     Route: 041
     Dates: start: 20090916, end: 20090917

REACTIONS (1)
  - DIARRHOEA HAEMORRHAGIC [None]
